FAERS Safety Report 13777294 (Version 1)
Quarter: 2017Q3

REPORT INFORMATION
  Report Type: Report from Study
  Country: CA (occurrence: CA)
  Receive Date: 20170720
  Receipt Date: 20170720
  Transmission Date: 20171127
  Serious: Yes (Other)
  Sender: FDA-Public Use
  Company Number: CA-REGENERON PHARMACEUTICALS, INC.-2017-18967

PATIENT

DRUGS (2)
  1. EYLEA [Suspect]
     Active Substance: AFLIBERCEPT
     Indication: NEOVASCULAR AGE-RELATED MACULAR DEGENERATION
     Dosage: 40MG/ML - 2MG/0.05ML
  2. EYLEA [Suspect]
     Active Substance: AFLIBERCEPT
     Dosage: 40MG/ML - 2MG/0.05ML - 2ND EYLEA INJECTION
     Route: 031
     Dates: start: 20170718, end: 20170718

REACTIONS (1)
  - Blindness unilateral [Not Recovered/Not Resolved]
